FAERS Safety Report 21273552 (Version 1)
Quarter: 2022Q3

REPORT INFORMATION
  Report Type: Spontaneous
  Country: US (occurrence: None)
  Receive Date: 20220830
  Receipt Date: 20220830
  Transmission Date: 20221027
  Serious: Yes (Death)
  Sender: FDA-Public Use
  Company Number: None

PATIENT
  Age: 67 Year
  Sex: Female

DRUGS (2)
  1. CYCLOSPORINE MODIFIED [Suspect]
     Active Substance: CYCLOSPORINE
     Indication: Liver transplant
     Dosage: 100MG AM + 75MGP  BID PO? ?
     Route: 048
     Dates: start: 2018, end: 20220716
  2. MYCOPHENOLIC ACID [Suspect]
     Active Substance: MYCOPHENOLIC ACID
     Dosage: 250MG BID PO?
     Route: 048
     Dates: start: 2018, end: 20220716

REACTIONS (1)
  - Death [None]

NARRATIVE: CASE EVENT DATE: 20220717
